FAERS Safety Report 15865801 (Version 2)
Quarter: 2019Q1

REPORT INFORMATION
  Report Type: Spontaneous
  Country: GB (occurrence: GB)
  Receive Date: 20190125
  Receipt Date: 20190305
  Transmission Date: 20190417
  Serious: Yes (Hospitalization)
  Sender: FDA-Public Use
  Company Number: GB-GW PHARMA-201901GBGW0045

PATIENT

DRUGS (10)
  1. EPIDIOLEX [Suspect]
     Active Substance: CANNABIDIOL
     Dosage: 11.7 MG/KG, 150 MILLIGRAM, BID
     Route: 065
  2. EPIDIOLEX [Suspect]
     Active Substance: CANNABIDIOL
     Dosage: 16.3 MG/KG, 210 MILLIGRAM, BID
     Route: 065
     Dates: start: 20181106, end: 20181113
  3. CLONAZEPAM. [Concomitant]
     Active Substance: CLONAZEPAM
     Indication: PRODUCT USED FOR UNKNOWN INDICATION
     Dosage: 2 MILLILITER, BID
     Route: 065
  4. KEPPRA [Concomitant]
     Active Substance: LEVETIRACETAM
     Indication: PRODUCT USED FOR UNKNOWN INDICATION
     Dosage: 8 MILLILITER, BID
     Route: 065
  5. EPIDIOLEX [Suspect]
     Active Substance: CANNABIDIOL
     Indication: EPILEPSY
     Dosage: 21 MG/KG, 280 MILLIGRAM, BID
     Route: 065
     Dates: start: 20181113, end: 20181229
  6. EPIDIOLEX [Suspect]
     Active Substance: CANNABIDIOL
     Dosage: 10.9 MG/KG, 140 MILLIGRAM, BID
     Route: 065
     Dates: start: 20181030, end: 20181106
  7. CLONAZEPAM. [Concomitant]
     Active Substance: CLONAZEPAM
     Dosage: UNK
     Dates: start: 20181221
  8. EPIDIOLEX [Suspect]
     Active Substance: CANNABIDIOL
     Dosage: 23.3 MG/KG, 300 MILLIGRAM, BID
     Route: 065
     Dates: start: 20181229
  9. PHENOBARBITAL. [Suspect]
     Active Substance: PHENOBARBITAL
     Indication: PRODUCT USED FOR UNKNOWN INDICATION
     Dosage: 5.5 MILLILITER, BID
     Route: 065
  10. EPIDIOLEX [Suspect]
     Active Substance: CANNABIDIOL
     Dosage: 5.45 MG/KG 70 MILLIGRAM, BID
     Route: 065
     Dates: start: 20181023, end: 20181030

REACTIONS (4)
  - Sepsis [Unknown]
  - Seizure [Recovering/Resolving]
  - Psychomotor hyperactivity [Unknown]
  - Aggression [Recovered/Resolved]

NARRATIVE: CASE EVENT DATE: 20181223
